FAERS Safety Report 5513968-7 (Version None)
Quarter: 2007Q4

REPORT INFORMATION
  Report Type: 
  Country: None (occurrence: None)
  Receive Date: 20071106
  Receipt Date: 20070914
  Transmission Date: 20080405
  Serious: Yes (Other)
  Sender: FDA-Public Use
  Company Number: US-JNJFOC-20070704942

PATIENT
  Age: 75 Year
  Sex: Male
  Weight: 99.7913 kg

DRUGS (3)
  1. MOTRIN [Suspect]
     Indication: OSTEOARTHRITIS
     Dosage: 600 MG, 2 IN 1 DAY
     Dates: start: 19930101, end: 20030101
  2. ASPIRIN [Concomitant]
  3. MORPHINE [Concomitant]

REACTIONS (2)
  - DIPLOPIA [None]
  - VISION BLURRED [None]
